FAERS Safety Report 13739793 (Version 1)
Quarter: 2017Q3

REPORT INFORMATION
  Report Type: Spontaneous
  Country: FR (occurrence: FR)
  Receive Date: 20170710
  Receipt Date: 20170710
  Transmission Date: 20171127
  Serious: Yes (Hospitalization)
  Sender: FDA-Public Use
  Company Number: PHHY2009FR14316

PATIENT
  Sex: Female

DRUGS (1)
  1. CARTEOLOL [Suspect]
     Active Substance: CARTEOLOL
     Indication: GLAUCOMA
     Dosage: MATERNAL DOSE UNKNOWN
     Route: 064
     Dates: start: 200802, end: 200805

REACTIONS (2)
  - Exposure during pregnancy [None]
  - Bradycardia foetal [Recovered/Resolved]
